FAERS Safety Report 5028414-X (Version None)
Quarter: 2006Q2

REPORT INFORMATION
  Report Type: 
  Country: None (occurrence: None)
  Receive Date: 20060617
  Receipt Date: 20060605
  Transmission Date: 20061013
  Serious: Yes (Life-Threatening, Hospitalization)
  Sender: FDA-Public Use
  Company Number: JP-AVENTIS-200611715JP

PATIENT
  Age: 74 Year
  Sex: Male

DRUGS (10)
  1. AMARYL [Suspect]
     Indication: DIABETES MELLITUS
     Dosage: DOSE: 1 TABLET
     Route: 048
     Dates: end: 20060603
  2. CIPROXAN [Suspect]
     Indication: INFECTION PROPHYLAXIS
     Dosage: DOSE: 3 TABLETS
     Route: 048
     Dates: start: 20060529, end: 20060603
  3. ACTOS [Concomitant]
     Indication: DIABETES MELLITUS
     Dosage: DOSE: 1 TABLET
     Route: 048
  4. LASIX [Concomitant]
     Indication: HYPERTENSION
     Dosage: DOSE: 1 TABLET
     Route: 048
  5. WARFARIN SODIUM [Concomitant]
     Indication: ATRIAL FIBRILLATION
     Route: 048
  6. NU-LOTAN [Concomitant]
     Indication: HYPERTENSION
     Dosage: DOSE: 1 TABLET
     Route: 048
  7. LIPITOR [Concomitant]
     Route: 048
  8. VASOLAN [Concomitant]
     Indication: ATRIAL FIBRILLATION
     Dosage: DOSE: 3 TABLETS
     Route: 048
  9. ALLOPURINOL [Concomitant]
     Dosage: DOSE: 2 TABLETS
     Route: 048
  10. LANIRAPID [Concomitant]
     Indication: CARDIAC FAILURE
     Dosage: DOSE: 1 TABLET
     Route: 048

REACTIONS (4)
  - CONVULSION [None]
  - DRUG INTERACTION [None]
  - HYPOGLYCAEMIC COMA [None]
  - POSTOPERATIVE WOUND INFECTION [None]
